FAERS Safety Report 21413446 (Version 4)
Quarter: 2023Q4

REPORT INFORMATION
  Report Type: Report from Study
  Country: JP (occurrence: JP)
  Receive Date: 20221006
  Receipt Date: 20231124
  Transmission Date: 20240110
  Serious: Yes (Hospitalization)
  Sender: FDA-Public Use
  Company Number: JP-TAKEDA-2022TJP074962

PATIENT
  Age: 69 Year
  Sex: Male
  Weight: 65 kg

DRUGS (20)
  1. TEDUGLUTIDE [Suspect]
     Active Substance: TEDUGLUTIDE
     Indication: Short-bowel syndrome
     Dosage: 0.025 MILLIGRAM/KILOGRAM, QD
     Route: 058
     Dates: start: 20220502, end: 20220929
  2. TEDUGLUTIDE [Suspect]
     Active Substance: TEDUGLUTIDE
     Indication: Short-bowel syndrome
     Dosage: 0.025 MILLIGRAM/KILOGRAM, QD
     Route: 058
     Dates: start: 20220502, end: 20220929
  3. TEDUGLUTIDE [Suspect]
     Active Substance: TEDUGLUTIDE
     Indication: Short-bowel syndrome
     Dosage: 0.025 MILLIGRAM/KILOGRAM, QD
     Route: 058
     Dates: start: 20220502, end: 20220929
  4. TEDUGLUTIDE [Suspect]
     Active Substance: TEDUGLUTIDE
     Indication: Short-bowel syndrome
     Dosage: 0.025 MILLIGRAM/KILOGRAM, QD
     Route: 058
     Dates: start: 20220502, end: 20220929
  5. TEDUGLUTIDE [Suspect]
     Active Substance: TEDUGLUTIDE
     Dosage: UNK
     Route: 058
  6. TEDUGLUTIDE [Suspect]
     Active Substance: TEDUGLUTIDE
     Dosage: UNK
     Route: 058
  7. TEDUGLUTIDE [Suspect]
     Active Substance: TEDUGLUTIDE
     Dosage: UNK
     Route: 058
  8. TEDUGLUTIDE [Suspect]
     Active Substance: TEDUGLUTIDE
     Dosage: UNK
     Route: 058
  9. TEDUGLUTIDE [Suspect]
     Active Substance: TEDUGLUTIDE
     Dosage: 0.025 MILLIGRAM/KILOGRAM, QD
     Route: 058
     Dates: start: 202309
  10. TEDUGLUTIDE [Suspect]
     Active Substance: TEDUGLUTIDE
     Dosage: 0.025 MILLIGRAM/KILOGRAM, QD
     Route: 058
     Dates: start: 202309
  11. TEDUGLUTIDE [Suspect]
     Active Substance: TEDUGLUTIDE
     Dosage: 0.025 MILLIGRAM/KILOGRAM, QD
     Route: 058
     Dates: start: 202309
  12. TEDUGLUTIDE [Suspect]
     Active Substance: TEDUGLUTIDE
     Dosage: 0.025 MILLIGRAM/KILOGRAM, QD
     Route: 058
     Dates: start: 202309
  13. AZOSEMIDE [Concomitant]
     Active Substance: AZOSEMIDE
     Dosage: UNK
     Route: 065
  14. TRICHLORMETHIAZIDE [Concomitant]
     Active Substance: TRICHLORMETHIAZIDE
     Dosage: UNK
     Route: 065
  15. SODIUM BICARBONATE [Concomitant]
     Active Substance: SODIUM BICARBONATE
     Dosage: UNK
     Route: 065
  16. NIFEDIPINE [Concomitant]
     Active Substance: NIFEDIPINE
     Dosage: UNK
     Route: 065
  17. AMLODIPINE [Concomitant]
     Active Substance: AMLODIPINE BESYLATE
     Dosage: UNK
     Route: 065
  18. DOXAZOSIN [Concomitant]
     Active Substance: DOXAZOSIN MESYLATE
     Dosage: UNK
     Route: 065
  19. POLAPREZINC [Concomitant]
     Active Substance: POLAPREZINC
     Dosage: UNK
     Route: 065
  20. AMINO ACIDS\CARBOHYDRATES\MINERALS\SOYBEAN OIL\VITAMINS [Concomitant]
     Active Substance: AMINO ACIDS\CARBOHYDRATES\MINERALS\SOYBEAN OIL\VITAMINS
     Dosage: UNK
     Route: 065

REACTIONS (4)
  - Hepatic function abnormal [Recovered/Resolved]
  - Constipation [Recovering/Resolving]
  - Diarrhoea [Recovered/Resolved]
  - Intentional dose omission [Unknown]

NARRATIVE: CASE EVENT DATE: 20220505
